FAERS Safety Report 9306118 (Version 2)
Quarter: 2013Q2

REPORT INFORMATION
  Report Type: Spontaneous
  Country: US (occurrence: US)
  Receive Date: 20130523
  Receipt Date: 20130530
  Transmission Date: 20140414
  Serious: Yes (Other)
  Sender: FDA-Public Use
  Company Number: US-ROCHE-1227790

PATIENT
  Age: 61 Year
  Sex: Female
  Weight: 132.57 kg

DRUGS (22)
  1. XOLAIR [Suspect]
     Indication: ASTHMA
     Route: 058
     Dates: start: 2012
  2. XOLAIR [Suspect]
     Route: 058
     Dates: start: 20130508, end: 20130508
  3. ALPRAZOLAM [Concomitant]
     Route: 065
     Dates: end: 20120611
  4. BENICAR [Concomitant]
     Route: 065
  5. LIPITOR [Concomitant]
     Indication: BLOOD CHOLESTEROL
     Route: 065
  6. ZOLOFT [Concomitant]
     Route: 065
  7. VICODIN [Concomitant]
     Route: 065
  8. KLOR-CON [Concomitant]
     Route: 065
  9. SPIRONOLACTONE [Concomitant]
     Route: 065
  10. NEXIUM [Concomitant]
     Route: 065
  11. VITAMIN D3 [Concomitant]
     Dosage: 50000 UNITS
     Route: 065
  12. LYRICA [Concomitant]
     Route: 065
  13. LASIX [Concomitant]
     Route: 065
  14. FLEXERIL (UNITED STATES) [Concomitant]
     Route: 065
     Dates: start: 20121220
  15. IPRATROPIUM BROMIDE [Concomitant]
     Route: 050
     Dates: start: 20120723
  16. ALBUTEROL SULFATE [Concomitant]
     Route: 065
     Dates: start: 20120723
  17. PROAIR (UNITED STATES) [Concomitant]
     Route: 065
  18. EPIPEN [Concomitant]
     Route: 065
  19. FLUCONAZOLE [Concomitant]
     Route: 065
  20. FLUTICASONE PROPIONATE [Concomitant]
     Route: 065
  21. ASTEPRO [Concomitant]
     Route: 065
  22. SINGULAIR [Concomitant]
     Route: 065

REACTIONS (1)
  - Anaphylactic reaction [Recovered/Resolved]
